FAERS Safety Report 18625877 (Version 1)
Quarter: 2020Q4

REPORT INFORMATION
  Report Type: Spontaneous
  Country: US (occurrence: US)
  Receive Date: 20201217
  Receipt Date: 20201217
  Transmission Date: 20210114
  Serious: No
  Sender: FDA-Public Use
  Company Number: US-SA-2020SA361133

PATIENT

DRUGS (1)
  1. DUPIXENT [Suspect]
     Active Substance: DUPILUMAB
     Dosage: 300 MG, QOW
     Route: 058
     Dates: start: 2019

REACTIONS (6)
  - Scratch [Unknown]
  - Treatment failure [Unknown]
  - Cardiac disorder [Unknown]
  - Fluid retention [Unknown]
  - Dermatitis [Unknown]
  - Skin fissures [Unknown]

NARRATIVE: CASE EVENT DATE: 202006
